FAERS Safety Report 20766973 (Version 1)
Quarter: 2022Q2

REPORT INFORMATION
  Report Type: Spontaneous
  Country: FR (occurrence: FR)
  Receive Date: 20220429
  Receipt Date: 20220429
  Transmission Date: 20220721
  Serious: Yes (Hospitalization)
  Sender: FDA-Public Use
  Company Number: None

PATIENT
  Age: 94 Year
  Sex: Female
  Weight: 80 kg

DRUGS (7)
  1. DULOXETINE HYDROCHLORIDE [Suspect]
     Active Substance: DULOXETINE HYDROCHLORIDE
     Indication: Affective disorder
     Dosage: 90 MILLIGRAM DAILY; 90 MG/D, CHLORHYDRATE DE DULOXETINE
     Route: 048
     Dates: start: 20211227
  2. SIMVASTATIN [Concomitant]
     Active Substance: SIMVASTATIN
  3. LEVOTHYROXINE SODIUM [Concomitant]
     Active Substance: LEVOTHYROXINE SODIUM
  4. EZETIMIBE [Concomitant]
     Active Substance: EZETIMIBE
  5. ASPIRIN [Concomitant]
     Active Substance: ASPIRIN
  6. RAMIPRIL [Concomitant]
     Active Substance: RAMIPRIL
  7. PREGABALIN [Concomitant]
     Active Substance: PREGABALIN

REACTIONS (1)
  - Hyponatraemia [Recovered/Resolved]

NARRATIVE: CASE EVENT DATE: 20220306
